FAERS Safety Report 14304454 (Version 2)
Quarter: 2018Q1

REPORT INFORMATION
  Report Type: Report from Study
  Country: CO (occurrence: CO)
  Receive Date: 20171219
  Receipt Date: 20180119
  Transmission Date: 20180509
  Serious: Yes (Hospitalization)
  Sender: FDA-Public Use
  Company Number: PHHY2017CO187532

PATIENT
  Age: 53 Year
  Sex: Female
  Weight: 65 kg

DRUGS (4)
  1. TASIGNA [Suspect]
     Active Substance: NILOTINIB
     Dosage: 150 MG, UNK (TWO CAPSULES OF 150 MG EVERY 12 HOURS)
     Route: 048
     Dates: start: 20170221
  2. TASIGNA [Suspect]
     Active Substance: NILOTINIB
     Dosage: 150 MG, (FOUR TIMES A DAY)
     Route: 048
     Dates: start: 20170221
  3. SIMVASTATIN. [Concomitant]
     Active Substance: SIMVASTATIN
     Indication: BLOOD CHOLESTEROL INCREASED
     Dosage: 20 MG, UNK
     Route: 065
  4. TASIGNA [Suspect]
     Active Substance: NILOTINIB
     Indication: CHRONIC MYELOID LEUKAEMIA
     Dosage: 600 MG, BID
     Route: 048
     Dates: start: 20170209

REACTIONS (7)
  - Chest pain [Unknown]
  - Pain in jaw [Unknown]
  - Malaise [Unknown]
  - Pain in extremity [Unknown]
  - Infarction [Unknown]
  - Incorrect dose administered [Unknown]
  - Inappropriate schedule of drug administration [Unknown]

NARRATIVE: CASE EVENT DATE: 20170209
